FAERS Safety Report 7137360-7 (Version None)
Quarter: 2010Q4

REPORT INFORMATION
  Report Type: 
  Country: None (occurrence: None)
  Receive Date: 20101206
  Receipt Date: 20100405
  Transmission Date: 20110411
  Serious: Yes (Death, Hospitalization)
  Sender: FDA-Public Use
  Company Number: US-ACTELION-A-US2008-22585

PATIENT

DRUGS (1)
  1. TRACLEER [Suspect]
     Indication: PULMONARY ARTERIAL HYPERTENSION
     Route: 048

REACTIONS (6)
  - DEATH [None]
  - HEPATIC PAIN [None]
  - INCREASED TENDENCY TO BRUISE [None]
  - INCREASED UPPER AIRWAY SECRETION [None]
  - OXYGEN SATURATION ABNORMAL [None]
  - PULMONARY OEDEMA [None]
